FAERS Safety Report 10388145 (Version 2)
Quarter: 2014Q3

REPORT INFORMATION
  Report Type: Spontaneous
  Country: JP (occurrence: JP)
  Receive Date: 20140815
  Receipt Date: 20140815
  Transmission Date: 20150326
  Serious: Yes (Other)
  Sender: FDA-Public Use
  Company Number: JP-PFIZER INC-2014174906

PATIENT
  Age: 76 Year
  Sex: Male

DRUGS (10)
  1. MAINTATE [Concomitant]
     Active Substance: BISOPROLOL FUMARATE
  2. AMLODIPINE [Concomitant]
     Active Substance: AMLODIPINE BESYLATE
     Route: 048
  3. ROHYPNOL [Concomitant]
     Active Substance: FLUNITRAZEPAM
  4. ALDACTONE [Concomitant]
     Active Substance: SPIRONOLACTONE
  5. RISPERDAL [Concomitant]
     Active Substance: RISPERIDONE
  6. LASIX [Concomitant]
     Active Substance: FUROSEMIDE
  7. TORISEL [Suspect]
     Active Substance: TEMSIROLIMUS
     Indication: RENAL CELL CARCINOMA
     Dosage: 25 MG, WEEKLY
     Route: 041
     Dates: start: 20140610, end: 20140702
  8. NEXIUM [Concomitant]
     Active Substance: ESOMEPRAZOLE MAGNESIUM
  9. EQUA [Concomitant]
     Active Substance: VILDAGLIPTIN
  10. PURSENNID [Concomitant]
     Active Substance: SENNOSIDES A AND B CALCIUM

REACTIONS (3)
  - Altered state of consciousness [Not Recovered/Not Resolved]
  - Disorientation [Unknown]
  - Delirium [Unknown]

NARRATIVE: CASE EVENT DATE: 20140624
